FAERS Safety Report 12374742 (Version 1)
Quarter: 2016Q2

REPORT INFORMATION
  Report Type: Spontaneous
  Country: US (occurrence: US)
  Receive Date: 20160517
  Receipt Date: 20160517
  Transmission Date: 20160815
  Serious: No
  Sender: FDA-Public Use
  Company Number: US-PFIZER INC-2016246439

PATIENT
  Sex: Female

DRUGS (2)
  1. ADVIL [Suspect]
     Active Substance: IBUPROFEN
     Indication: MUSCULOSKELETAL PAIN
  2. ADVIL [Suspect]
     Active Substance: IBUPROFEN
     Indication: NECK PAIN
     Dosage: 200 MG, UNK

REACTIONS (2)
  - Drug ineffective [Unknown]
  - Insomnia [Unknown]
